FAERS Safety Report 10232510 (Version 4)
Quarter: 2015Q2

REPORT INFORMATION
  Report Type: Spontaneous
  Country: US (occurrence: US)
  Receive Date: 20140612
  Receipt Date: 20150417
  Transmission Date: 20150821
  Serious: Yes (Other)
  Sender: FDA-Public Use
  Company Number: US-JNJFOC-20140606618

PATIENT
  Sex: Male

DRUGS (4)
  1. RISPERIDONE. [Suspect]
     Active Substance: RISPERIDONE
     Indication: ASPERGER^S DISORDER
     Route: 048
  2. RISPERDAL [Suspect]
     Active Substance: RISPERIDONE
     Indication: ATTENTION DEFICIT/HYPERACTIVITY DISORDER
     Route: 048
  3. RISPERIDONE. [Suspect]
     Active Substance: RISPERIDONE
     Indication: ATTENTION DEFICIT/HYPERACTIVITY DISORDER
     Route: 048
  4. RISPERDAL [Suspect]
     Active Substance: RISPERIDONE
     Indication: ASPERGER^S DISORDER
     Route: 048

REACTIONS (7)
  - Gynaecomastia [Not Recovered/Not Resolved]
  - Weight increased [Unknown]
  - Injury [Unknown]
  - Hyperprolactinaemia [Unknown]
  - Tardive dyskinesia [Unknown]
  - Product use issue [Unknown]
  - Galactorrhoea [Unknown]
